FAERS Safety Report 7073056-8 (Version None)
Quarter: 2010Q4

REPORT INFORMATION
  Report Type: 
  Country: None (occurrence: None)
  Receive Date: 20101029
  Receipt Date: 20100607
  Transmission Date: 20110411
  Serious: No
  Sender: FDA-Public Use
  Company Number: A0855676A

PATIENT
  Age: 51 Year
  Sex: Male

DRUGS (17)
  1. ADVAIR DISKUS 100/50 [Suspect]
     Indication: CHRONIC OBSTRUCTIVE PULMONARY DISEASE
     Dosage: 1PUFF TWICE PER DAY
     Route: 055
     Dates: start: 19990601
  2. SYMBICORT [Concomitant]
  3. PROVENTIL [Concomitant]
  4. LISINOPRIL [Concomitant]
  5. ALDACTONE [Concomitant]
  6. ASPIRIN [Concomitant]
  7. OXYCONTIN [Concomitant]
  8. COREG [Concomitant]
  9. PERCOCET [Concomitant]
  10. SYNTHROID [Concomitant]
  11. NEXIUM [Concomitant]
  12. LASIX [Concomitant]
  13. LYRICA [Concomitant]
  14. LIPITOR [Concomitant]
  15. REGLAN [Concomitant]
  16. ZAROXOLYN [Concomitant]
  17. NITROGLYCERIN [Concomitant]

REACTIONS (2)
  - DYSPNOEA [None]
  - PRODUCT QUALITY ISSUE [None]
